FAERS Safety Report 5225897-7 (Version None)
Quarter: 2007Q1

REPORT INFORMATION
  Report Type: 
  Country: None (occurrence: None)
  Receive Date: 20070129
  Receipt Date: 20070112
  Transmission Date: 20070707
  Serious: Yes (Other)
  Sender: FDA-Public Use
  Company Number: 8021465

PATIENT
  Age: 8 Year
  Sex: Male
  Weight: 28 kg

DRUGS (2)
  1. EQUASYM [Suspect]
     Indication: ATTENTION DEFICIT/HYPERACTIVITY DISORDER
     Dosage: 30 MG 1/D PO
     Route: 048
     Dates: start: 20061221, end: 20070102
  2. MEDIKINET [Suspect]
     Indication: ATTENTION DEFICIT/HYPERACTIVITY DISORDER
     Dosage: 30 MG 1/D PO
     Route: 048
     Dates: start: 20060901, end: 20061220

REACTIONS (6)
  - AGGRESSION [None]
  - AGITATION [None]
  - EYE PAIN [None]
  - HEADACHE [None]
  - NEGATIVISM [None]
  - RESTLESSNESS [None]
